FAERS Safety Report 21038218 (Version 2)
Quarter: 2022Q3

REPORT INFORMATION
  Report Type: Spontaneous
  Country: US (occurrence: US)
  Receive Date: 20220704
  Receipt Date: 20220724
  Transmission Date: 20221027
  Serious: No
  Sender: FDA-Public Use
  Company Number: US-ALXN-A202207730

PATIENT
  Age: 70 Year
  Sex: Male
  Weight: 112.93 kg

DRUGS (2)
  1. SOLIRIS [Suspect]
     Active Substance: ECULIZUMAB
     Indication: Myasthenia gravis
     Dosage: UNK
     Route: 065
     Dates: start: 20190913
  2. SOLIRIS [Suspect]
     Active Substance: ECULIZUMAB
     Dosage: 1200 MG, Q2W
     Route: 042

REACTIONS (2)
  - Infusion site extravasation [Recovered/Resolved]
  - Infusion site swelling [Recovered/Resolved]

NARRATIVE: CASE EVENT DATE: 20220629
